FAERS Safety Report 12543268 (Version 1)
Quarter: 2016Q3

REPORT INFORMATION
  Report Type: Spontaneous
  Country: US (occurrence: US)
  Receive Date: 20160711
  Receipt Date: 20160711
  Transmission Date: 20161109
  Serious: No
  Sender: FDA-Public Use
  Company Number: US-009507513-1606USA007564

PATIENT
  Sex: Female

DRUGS (1)
  1. ASMANEX [Suspect]
     Active Substance: MOMETASONE FUROATE
     Dosage: 200 MICROGRAM, UNKNOWN, THERAPY ROUTE: ORAL INHALATION
     Route: 055

REACTIONS (3)
  - No adverse event [Unknown]
  - Accidental exposure to product [Unknown]
  - Product quality issue [Unknown]
